FAERS Safety Report 13648790 (Version 1)
Quarter: 2017Q2

REPORT INFORMATION
  Report Type: Spontaneous
  Country: US (occurrence: US)
  Receive Date: 20170613
  Receipt Date: 20170613
  Transmission Date: 20170830
  Serious: Yes (Life-Threatening, Hospitalization)
  Sender: FDA-Public Use
  Company Number: US-UNITED THERAPEUTICS-UNT-2017-003517

PATIENT
  Age: 43 Year
  Sex: Female

DRUGS (1)
  1. REMODULIN [Suspect]
     Active Substance: TREPROSTINIL
     Indication: PULMONARY ARTERIAL HYPERTENSION
     Dosage: 0.0556 ?G/KG, CONTINUING
     Route: 041
     Dates: start: 20120223

REACTIONS (11)
  - Asthma [Recovering/Resolving]
  - Morganella infection [Recovering/Resolving]
  - Anaemia [Recovering/Resolving]
  - Chronic inflammatory demyelinating polyradiculoneuropathy [Recovering/Resolving]
  - Pneumonia [Recovering/Resolving]
  - Pneumonia staphylococcal [Recovering/Resolving]
  - Hyperglycaemia [Recovering/Resolving]
  - Diaphragmatic paralysis [Recovering/Resolving]
  - Blood immunoglobulin G decreased [Recovering/Resolving]
  - Respiratory failure [Recovering/Resolving]
  - Device related infection [Recovering/Resolving]

NARRATIVE: CASE EVENT DATE: 201703
